FAERS Safety Report 8969004 (Version 3)
Quarter: 2012Q4

REPORT INFORMATION
  Report Type: Report from Study
  Country: US (occurrence: US)
  Receive Date: 20121217
  Receipt Date: 20121227
  Transmission Date: 20130627
  Serious: Yes (Other)
  Sender: FDA-Public Use
  Company Number: US-PFIZER INC-2012311972

PATIENT
  Age: 62 Year
  Sex: Male
  Weight: 79.37 kg

DRUGS (11)
  1. LIPITOR [Suspect]
     Indication: MUSCLE PAIN
     Dosage: 40 mg, 1x/day
     Route: 048
  2. NIASPAN [Suspect]
     Indication: LOW HDL
     Dosage: 1000 mg, 1x/day
     Route: 048
     Dates: start: 2002
  3. TYLENOL [Suspect]
     Indication: FEVER
     Dosage: UNK
     Dates: start: 201208, end: 201208
  4. ASA [Suspect]
     Indication: ILL-DEFINED DISORDER
     Dosage: 325 mg, 1x/day
     Route: 048
  5. ASA [Suspect]
     Dosage: 81 mg, 1x/day
     Route: 048
     Dates: start: 201208
  6. ATENOLOL [Concomitant]
     Indication: HYPERTENSION
     Dosage: 50 mg, 1x/day
     Route: 048
  7. LOSARTAN [Concomitant]
     Indication: HYPERTENSION
     Dosage: 100 mg, 1x/day
     Route: 048
  8. ZETIA [Concomitant]
     Dosage: UNK mg, 1x/day
     Route: 048
  9. NEXIUM [Concomitant]
     Dosage: 40 mg, 1x/day
     Route: 048
  10. METFORMIN [Concomitant]
     Indication: DIABETES
     Dosage: 1000 mg, 2x/day (1000 mg,2 in 1D)
     Route: 048
  11. METFORMIN [Concomitant]
     Dosage: UNK, 1x/day (daily)
     Route: 048

REACTIONS (11)
  - Diabetes mellitus [Unknown]
  - Prostate infection [Recovered/Resolved]
  - Pyrexia [Recovered/Resolved]
  - Flushing [Recovered/Resolved]
  - Skin burning sensation [Recovered/Resolved]
  - Abdominal discomfort [Recovered/Resolved]
  - Tinnitus [Recovering/Resolving]
  - Hepatic enzyme increased [Unknown]
  - Overdose [Unknown]
  - Urinary incontinence [Recovered/Resolved]
  - Myalgia [Unknown]
